FAERS Safety Report 7724647-X (Version None)
Quarter: 2011Q3

REPORT INFORMATION
  Report Type: 
  Country: None (occurrence: None)
  Receive Date: 20110901
  Receipt Date: 20110822
  Transmission Date: 20111222
  Serious: Yes (Other)
  Sender: FDA-Public Use
  Company Number: JP-ASTRAZENECA-2011SE50343

PATIENT
  Age: 24293 Day
  Sex: Female
  Weight: 49.5 kg

DRUGS (7)
  1. METOPROLOL TARTRATE [Concomitant]
     Indication: PSYCHOTIC DISORDER
     Route: 048
     Dates: start: 20100825
  2. CLONAZEPAM [Suspect]
     Indication: PSYCHOTIC DISORDER
     Route: 048
     Dates: start: 20100428, end: 20110713
  3. GOODMIN [Concomitant]
     Route: 048
     Dates: start: 20110713
  4. SEROQUEL [Suspect]
     Indication: PSYCHOTIC DISORDER
     Route: 048
     Dates: start: 20110629, end: 20110713
  5. FAMOTIDINE [Suspect]
     Indication: PSYCHOTIC DISORDER
     Route: 048
     Dates: start: 20100428, end: 20110713
  6. LITHIUM CARBONATE [Suspect]
     Indication: PSYCHOTIC DISORDER
     Route: 048
     Dates: start: 20100428, end: 20110713
  7. ABILIFY [Suspect]
     Indication: PSYCHOTIC DISORDER
     Route: 048
     Dates: start: 20110629

REACTIONS (2)
  - RASH [None]
  - DRUG LEVEL INCREASED [None]
